FAERS Safety Report 7396631-X (Version None)
Quarter: 2011Q2

REPORT INFORMATION
  Report Type: 
  Country: None (occurrence: None)
  Receive Date: 20110406
  Receipt Date: 20110324
  Transmission Date: 20111010
  Serious: Yes (Hospitalization)
  Sender: FDA-Public Use
  Company Number: PHHY2011JP18243

PATIENT
  Sex: Female
  Weight: 54 kg

DRUGS (3)
  1. APRINDINE HYDROCHLORIDE [Suspect]
     Indication: ARRHYTHMIA
     Dates: start: 20100301
  2. DIOVAN [Suspect]
     Indication: HYPERTENSION
     Dosage: 40 MG, QD
     Route: 048
     Dates: start: 20100301, end: 20100506
  3. PRAVASTATIN SODIUM [Suspect]
     Indication: HYPERLIPIDAEMIA
     Dosage: 5 MG, QD
     Route: 048
     Dates: start: 20010201, end: 20100506

REACTIONS (7)
  - HEPATITIS [None]
  - MALAISE [None]
  - HEPATIC ENZYME INCREASED [None]
  - JAUNDICE [None]
  - LYMPHOCYTE STIMULATION TEST POSITIVE [None]
  - LIVER DISORDER [None]
  - PRURITUS [None]
